FAERS Safety Report 9115038 (Version 1)
Quarter: 2013Q1

REPORT INFORMATION
  Report Type: Spontaneous
  Country: US (occurrence: None)
  Receive Date: 20130220
  Receipt Date: 20130220
  Transmission Date: 20140127
  Serious: No
  Sender: FDA-Public Use
  Company Number: None

PATIENT
  Age: 45 Year
  Sex: Male
  Weight: 91 kg

DRUGS (2)
  1. AMPICILLIN/SULBACTAM [Suspect]
     Dates: start: 20121205, end: 20121205
  2. CLINDAMYCIN [Suspect]
     Dates: start: 20121205, end: 20121205

REACTIONS (3)
  - Sedation [None]
  - Respiratory depression [None]
  - Hypotension [None]
